FAERS Safety Report 15147090 (Version 1)
Quarter: 2018Q3

REPORT INFORMATION
  Report Type: Spontaneous
  Country: FR (occurrence: FR)
  Receive Date: 20180716
  Receipt Date: 20180716
  Transmission Date: 20181010
  Serious: Yes (Hospitalization)
  Sender: FDA-Public Use
  Company Number: FR-TEVA-2018-FR-925265

PATIENT
  Age: 88 Year
  Sex: Female
  Weight: 80 kg

DRUGS (12)
  1. MODOPAR 125 (100 MG/25 MG), G?LULE [Suspect]
     Active Substance: BENSERAZIDE HYDROCHLORIDE\LEVODOPA
     Indication: PARKINSONISM
     Dosage: 375 MILLIGRAM DAILY;
     Route: 048
  2. REFRESH CELLUVISC [Concomitant]
     Active Substance: CARBOXYMETHYLCELLULOSE SODIUM
     Route: 065
  3. TRIATEC [Concomitant]
     Route: 065
  4. PAROXETINE (CHLORALHYDRATE) HEMIHYDRATE [Suspect]
     Active Substance: PAROXETINE HYDROCHLORIDE
     Indication: PRODUCT USED FOR UNKNOWN INDICATION
     Dosage: 1 DOSAGE FORMS DAILY;
     Route: 048
     Dates: end: 20180518
  5. ESOMEPRAZOLE [Concomitant]
     Active Substance: ESOMEPRAZOLE
     Route: 065
  6. BISOPROLOL (HEMIFUMARATE DE) [Concomitant]
     Active Substance: BISOPROLOL FUMARATE
     Route: 065
  7. DICLOFENAC [Concomitant]
     Active Substance: DICLOFENAC
     Route: 065
  8. ATORVASTATINE [Concomitant]
     Active Substance: ATORVASTATIN
     Route: 065
  9. KARDEGIC [Suspect]
     Active Substance: ASPIRIN DL-LYSINE
     Indication: PRODUCT USED FOR UNKNOWN INDICATION
     Dosage: 1 DOSAGE FORMS DAILY;
     Route: 048
     Dates: end: 20180518
  10. LEXOMIL ROCHE COMPRIME BAGUETTE, COMPRIM? QUADRIS?CABLE [Suspect]
     Active Substance: BROMAZEPAM
     Indication: PRODUCT USED FOR UNKNOWN INDICATION
     Dosage: .25 DOSAGE FORMS DAILY;
     Route: 048
     Dates: end: 20180514
  11. STILNOX 10 MG, COMPRIM? PELLICUL? S?CABLE [Suspect]
     Active Substance: ZOLPIDEM TARTRATE
     Indication: PRODUCT USED FOR UNKNOWN INDICATION
     Dosage: .5 DOSAGE FORMS DAILY;
     Route: 048
     Dates: end: 20180509
  12. DOLIPRANE [Concomitant]
     Active Substance: ACETAMINOPHEN
     Route: 065

REACTIONS (3)
  - Confusional state [Recovered/Resolved]
  - Hallucination, visual [Recovered/Resolved]
  - Hallucination, auditory [Recovered/Resolved]

NARRATIVE: CASE EVENT DATE: 20180509
